FAERS Safety Report 6574449-5 (Version None)
Quarter: 2010Q1

REPORT INFORMATION
  Report Type: 
  Country: None (occurrence: None)
  Receive Date: 20100209
  Receipt Date: 20090618
  Transmission Date: 20100710
  Serious: No
  Sender: FDA-Public Use
  Company Number: A0793377A

PATIENT
  Sex: Female

DRUGS (1)
  1. PAXIL [Suspect]
     Indication: DRUG USE FOR UNKNOWN INDICATION
     Route: 048

REACTIONS (3)
  - FATIGUE [None]
  - MOOD SWINGS [None]
  - WITHDRAWAL SYNDROME [None]
